FAERS Safety Report 4928691-7 (Version None)
Quarter: 2006Q1

REPORT INFORMATION
  Report Type: 
  Country: None (occurrence: None)
  Receive Date: 20060227
  Receipt Date: 20060227
  Transmission Date: 20060701
  Serious: Yes (Other)
  Sender: FDA-Public Use
  Company Number: None

PATIENT
  Age: 66 Year
  Sex: Male

DRUGS (5)
  1. DILTIAZEM [Suspect]
     Indication: ATRIAL FIBRILLATION
     Dosage: 5 MG/HR X 5 HOURS IV DRIP
     Route: 042
     Dates: start: 20051017, end: 20051018
  2. DILTIAZEM [Suspect]
     Indication: ATRIAL FIBRILLATION
     Dosage: 30 MG ONCE PO
     Route: 048
     Dates: start: 20041018, end: 20051018
  3. DIOVAN [Concomitant]
  4. ATENOLOL [Concomitant]
  5. IBUPROFEN [Concomitant]

REACTIONS (2)
  - HEART RATE DECREASED [None]
  - HYPOTENSION [None]
